FAERS Safety Report 8310079-2 (Version None)
Quarter: 2012Q2

REPORT INFORMATION
  Report Type: 
  Country: None (occurrence: None)
  Receive Date: 20120425
  Receipt Date: 20120416
  Transmission Date: 20120825
  Serious: Yes (Death, Hospitalization, Other)
  Sender: FDA-Public Use
  Company Number: MUTUAL PHARMACEUTICAL COMPANY, INC.-CLHC20120030

PATIENT
  Age: 58 Year
  Sex: Female

DRUGS (7)
  1. COLCHICINE [Suspect]
     Route: 048
     Dates: start: 20050605, end: 20050101
  2. PREDNISOLONE [Suspect]
     Route: 065
     Dates: start: 20050401, end: 20050101
  3. COLCHICINE [Suspect]
     Indication: BEHCET'S SYNDROME
     Route: 048
     Dates: start: 20041116, end: 20041130
  4. AZATHIOPRINE [Suspect]
     Route: 065
     Dates: start: 20050412, end: 20050101
  5. ANALGESICS [Concomitant]
     Indication: BEHCET'S SYNDROME
     Route: 065
     Dates: start: 20050401, end: 20050101
  6. PREDNISOLONE [Suspect]
     Indication: BEHCET'S SYNDROME
     Route: 065
     Dates: start: 20020101, end: 20041130
  7. AZATHIOPRINE [Suspect]
     Indication: BEHCET'S SYNDROME
     Route: 065
     Dates: start: 20020101, end: 20041130

REACTIONS (4)
  - SEPTIC SHOCK [None]
  - BONE MARROW FAILURE [None]
  - WHITE BLOOD CELL MORPHOLOGY ABNORMAL [None]
  - LEUKOPENIA [None]
